FAERS Safety Report 15098682 (Version 5)
Quarter: 2019Q1

REPORT INFORMATION
  Report Type: Spontaneous
  Country: US (occurrence: US)
  Receive Date: 20180702
  Receipt Date: 20190226
  Transmission Date: 20190417
  Serious: Yes (Life-Threatening, Hospitalization, Other)
  Sender: FDA-Public Use
  Company Number: US-MYLANLABS-2018M1046324

PATIENT
  Sex: Male
  Weight: 82 kg

DRUGS (2)
  1. FENTANYL TRANSDERMAL SYSTEM [Suspect]
     Active Substance: FENTANYL
     Indication: PRODUCT USED FOR UNKNOWN INDICATION
     Dosage: APPLY 1 PATCH TOPICALLY EVERY 72 HOURS
     Route: 062
  2. FENTANYL TRANSDERMAL SYSTEM [Suspect]
     Active Substance: FENTANYL
     Dosage: UNK
     Route: 062
     Dates: start: 20170123

REACTIONS (15)
  - Heart rate decreased [Recovered/Resolved]
  - Lung disorder [Unknown]
  - Hyperhidrosis [Unknown]
  - Dyspnoea [Unknown]
  - Malaise [Unknown]
  - Application site reaction [Not Recovered/Not Resolved]
  - Loss of consciousness [Unknown]
  - Pain [Unknown]
  - Memory impairment [Not Recovered/Not Resolved]
  - Cough [Unknown]
  - Wheezing [Unknown]
  - Drug effect increased [Unknown]
  - Blood urine present [Unknown]
  - Muscle spasms [Not Recovered/Not Resolved]
  - Product quality issue [Unknown]
